FAERS Safety Report 6313053-0 (Version None)
Quarter: 2009Q3

REPORT INFORMATION
  Report Type: 
  Country: None (occurrence: None)
  Receive Date: 20090814
  Receipt Date: 20090814
  Transmission Date: 20100115
  Serious: No
  Sender: FDA-Public Use
  Company Number: None

PATIENT
  Sex: Male
  Weight: 88.4514 kg

DRUGS (1)
  1. CIPROFLOXACN 500MG GENERIC [Suspect]
     Indication: URINARY TRACT INFECTION
     Dosage: ONE 2 TIMES A DAY PO
     Route: 048
     Dates: start: 20050101, end: 20090701

REACTIONS (1)
  - TRIGGER FINGER [None]
